FAERS Safety Report 24690128 (Version 1)
Quarter: 2024Q4

REPORT INFORMATION
  Report Type: Spontaneous
  Country: US (occurrence: US)
  Receive Date: 20241203
  Receipt Date: 20241203
  Transmission Date: 20250115
  Serious: Yes (Other)
  Sender: APOTEX
  Company Number: US-APOTEX-2024AP019101

PATIENT
  Age: 30 Year
  Sex: Female

DRUGS (2)
  1. DESMOPRESSIN [Suspect]
     Active Substance: DESMOPRESSIN
     Indication: Diabetes insipidus
     Dosage: 10 MICROGRAM, EVERY 8 HOURS
     Route: 065
  2. DESMOPRESSIN [Suspect]
     Active Substance: DESMOPRESSIN
     Dosage: 10 MICROGRAM, ON REDUCED FREQUENCY (UNSPECIFIED)
     Route: 065

REACTIONS (2)
  - Pulmonary congestion [Unknown]
  - Dyspnoea [Unknown]
